FAERS Safety Report 12893640 (Version 1)
Quarter: 2016Q4

REPORT INFORMATION
  Report Type: Spontaneous
  Country: US (occurrence: US)
  Receive Date: 20161028
  Receipt Date: 20161028
  Transmission Date: 20170207
  Serious: No
  Sender: FDA-Public Use
  Company Number: US-GLAXOSMITHKLINE-US2016GSK157387

PATIENT
  Sex: Female

DRUGS (4)
  1. VENTOLIN HFA [Suspect]
     Active Substance: ALBUTEROL SULFATE
     Indication: ASTHMA
     Dosage: 2 PUFF(S), EVERY 4 HOURS PRN
     Route: 055
     Dates: start: 201608
  2. ASTELIN [Concomitant]
     Active Substance: AZELASTINE HYDROCHLORIDE
  3. LISINOPRIL. [Concomitant]
     Active Substance: LISINOPRIL
  4. FLONASE [Concomitant]
     Active Substance: FLUTICASONE PROPIONATE

REACTIONS (4)
  - Cough [Not Recovered/Not Resolved]
  - Sinusitis [Unknown]
  - Dizziness [Unknown]
  - Device use error [Unknown]
